FAERS Safety Report 19188333 (Version 2)
Quarter: 2022Q2

REPORT INFORMATION
  Report Type: Spontaneous
  Country: JP (occurrence: JP)
  Receive Date: 20210427
  Receipt Date: 20220519
  Transmission Date: 20220721
  Serious: Yes (Death, Hospitalization, Other)
  Sender: FDA-Public Use
  Company Number: JP-SA-2021SA137618

PATIENT
  Age: 77 Year
  Sex: Male

DRUGS (3)
  1. THYMOGLOBULINE [Suspect]
     Active Substance: LAPINE T-LYMPHOCYTE IMMUNE GLOBULIN
     Indication: Aplastic anaemia
     Dosage: 2.5 MG/KG/DAY FROM DAY 1 TO 5
     Route: 041
  2. CYCLOSPORINE [Concomitant]
     Active Substance: CYCLOSPORINE
     Indication: Aplastic anaemia
     Dosage: 6 MG/KG/DAY FROM DAY 1
     Route: 048
  3. ELTROMBOPAG OLAMINE [Concomitant]
     Active Substance: ELTROMBOPAG OLAMINE
     Indication: Aplastic anaemia
     Dosage: 75 MG/DAY FROM DAY 1
     Route: 048

REACTIONS (7)
  - Endocarditis [Fatal]
  - Myocardial infarction [Fatal]
  - Decreased appetite [Fatal]
  - Malaise [Fatal]
  - Oedema peripheral [Fatal]
  - Pyrexia [Fatal]
  - Immunosuppression [Unknown]
